FAERS Safety Report 20581272 (Version 1)
Quarter: 2022Q1

REPORT INFORMATION
  Report Type: Spontaneous
  Country: US (occurrence: US)
  Receive Date: 20220311
  Receipt Date: 20220311
  Transmission Date: 20220423
  Serious: No
  Sender: FDA-Public Use
  Company Number: US-ICU MEDICAL, INC.-ICU2021US00034

PATIENT

DRUGS (1)
  1. STERILE WATER FOR IRRIGATION [Suspect]
     Active Substance: WATER
     Indication: Product used for unknown indication
     Route: 065

REACTIONS (2)
  - Product preparation error [Unknown]
  - No adverse event [Unknown]
